FAERS Safety Report 17367796 (Version 1)
Quarter: 2020Q1

REPORT INFORMATION
  Report Type: Spontaneous
  Country: DK (occurrence: DK)
  Receive Date: 20200204
  Receipt Date: 20200204
  Transmission Date: 20200409
  Serious: Yes (Other)
  Sender: FDA-Public Use
  Company Number: DK-JNJFOC-20130315554

PATIENT
  Sex: Male
  Weight: 90 kg

DRUGS (12)
  1. ZIPRASIDONE HYDROCHLORIDE. [Suspect]
     Active Substance: ZIPRASIDONE HYDROCHLORIDE
     Indication: MENTAL DISORDER
     Route: 048
     Dates: start: 2010, end: 2013
  2. ZYPREXA [Suspect]
     Active Substance: OLANZAPINE
     Indication: PRODUCT USED FOR UNKNOWN INDICATION
     Route: 065
     Dates: end: 2013
  3. DELEPSINE [Concomitant]
     Active Substance: VALPROATE SODIUM
     Indication: MANIA
     Dosage: 500 MG MORNING, 1 G OVERNIGHT
     Route: 048
     Dates: start: 20150202, end: 20170614
  4. DELEPSINE [Concomitant]
     Active Substance: VALPROATE SODIUM
     Indication: MOOD SWINGS
     Dosage: 2.5 ML MORNING AND 4 ML EVENING
     Route: 048
     Dates: start: 20150717
  5. SEROQUEL [Suspect]
     Active Substance: QUETIAPINE FUMARATE
     Indication: MENTAL DISORDER
     Route: 048
     Dates: start: 20050310
  6. ESCITALOPRAM [Concomitant]
     Active Substance: ESCITALOPRAM OXALATE
     Indication: PRODUCT USED FOR UNKNOWN INDICATION
     Route: 065
  7. CLOZAPIN HEXAL [Suspect]
     Active Substance: CLOZAPINE
     Indication: PSYCHOTIC DISORDER
     Dosage: PREVIOUSLY 350 MG, 15 FEB-14 SEP 2017 250 MG X 1 DAILY, FROM 14 SEP 2017 200 MG X 1 DAILY.
     Route: 048
  8. OLANZAPINE. [Suspect]
     Active Substance: OLANZAPINE
     Indication: PRODUCT USED FOR UNKNOWN INDICATION
     Route: 065
  9. CLOZAPIN HEXAL [Suspect]
     Active Substance: CLOZAPINE
     Route: 048
     Dates: start: 20170914
  10. ABILIFY [Concomitant]
     Active Substance: ARIPIPRAZOLE
     Indication: PRODUCT USED FOR UNKNOWN INDICATION
     Dates: start: 2014
  11. RISPERDAL [Suspect]
     Active Substance: RISPERIDONE
     Indication: PRODUCT USED FOR UNKNOWN INDICATION
     Route: 065
     Dates: end: 2013
  12. CLOZAPIN HEXAL [Suspect]
     Active Substance: CLOZAPINE
     Route: 048
     Dates: start: 20170215, end: 20170914

REACTIONS (6)
  - Sperm concentration decreased [Not Recovered/Not Resolved]
  - Erectile dysfunction [Not Recovered/Not Resolved]
  - Homosexuality [Not Recovered/Not Resolved]
  - Semen volume decreased [Unknown]
  - Gender dysphoria [Unknown]
  - Feminisation acquired [Not Recovered/Not Resolved]
